FAERS Safety Report 12183236 (Version 1)
Quarter: 2016Q1

REPORT INFORMATION
  Report Type: Spontaneous
  Country: US (occurrence: US)
  Receive Date: 20160316
  Receipt Date: 20160316
  Transmission Date: 20160526
  Serious: No
  Sender: FDA-Public Use
  Company Number: US-WARNER CHILCOTT, LLC-1049143

PATIENT
  Age: 55 Year
  Sex: Female

DRUGS (1)
  1. ESTRACE [Suspect]
     Active Substance: ESTRADIOL
     Route: 067
     Dates: start: 20150223

REACTIONS (4)
  - Weight increased [Unknown]
  - Muscle spasms [Unknown]
  - Palpitations [Unknown]
  - Abdominal distension [Unknown]
